FAERS Safety Report 12633056 (Version 2)
Quarter: 2016Q3

REPORT INFORMATION
  Report Type: Spontaneous
  Country: US (occurrence: US)
  Receive Date: 20160808
  Receipt Date: 20160808
  Transmission Date: 20161109
  Serious: No
  Sender: FDA-Public Use
  Company Number: US-BEH-2016058288

PATIENT
  Sex: Female
  Weight: 64 kg

DRUGS (9)
  1. CLARINEX [Concomitant]
     Active Substance: DESLORATADINE
  2. SERTALINE [Concomitant]
     Active Substance: SERTRALINE HYDROCHLORIDE
  3. EPIPEN [Concomitant]
     Active Substance: EPINEPHRINE
  4. THEO-24 [Concomitant]
     Active Substance: THEOPHYLLINE ANHYDROUS
  5. SIMVASTATIN. [Concomitant]
     Active Substance: SIMVASTATIN
  6. MONTELUKAST [Concomitant]
     Active Substance: MONTELUKAST SODIUM
  7. BUPROPION. [Concomitant]
     Active Substance: BUPROPION
  8. HIZENTRA [Suspect]
     Active Substance: HUMAN IMMUNOGLOBULIN G
     Indication: ILL-DEFINED DISORDER
     Route: 058
     Dates: start: 20130912
  9. SYNTHROID [Concomitant]
     Active Substance: LEVOTHYROXINE SODIUM

REACTIONS (2)
  - Bronchitis [Unknown]
  - Sinusitis [Unknown]
